FAERS Safety Report 7093421-2 (Version None)
Quarter: 2010Q4

REPORT INFORMATION
  Report Type: 
  Country: None (occurrence: None)
  Receive Date: 20101110
  Receipt Date: 20101103
  Transmission Date: 20110411
  Serious: Yes (Other)
  Sender: FDA-Public Use
  Company Number: US-ABBOTT-10P-163-0682350-00

PATIENT
  Age: 21 Year
  Sex: Female

DRUGS (2)
  1. ADALIMUMAB [Suspect]
     Indication: CROHN'S DISEASE
  2. MERCAPTOPURINE [Suspect]
     Indication: CROHN'S DISEASE

REACTIONS (2)
  - ABORTION INDUCED [None]
  - PRECURSOR T-LYMPHOBLASTIC LYMPHOMA/LEUKAEMIA [None]
